FAERS Safety Report 9226493 (Version 7)
Quarter: 2016Q1

REPORT INFORMATION
  Report Type: Spontaneous
  Country: CA (occurrence: CA)
  Receive Date: 20130412
  Receipt Date: 20160223
  Transmission Date: 20160526
  Serious: Yes (Other)
  Sender: FDA-Public Use
  Company Number: CA-AMGEN-CANSP2013017066

PATIENT
  Age: 65 Year
  Sex: Female
  Weight: 80 kg

DRUGS (35)
  1. ADALAT CC [Concomitant]
     Active Substance: NIFEDIPINE
     Dosage: 120 MG, QD
  2. BENTYL [Concomitant]
     Active Substance: DICYCLOMINE HYDROCHLORIDE
     Dosage: 20 MG, TID
  3. CIDROXAL [Concomitant]
     Dosage: FOR EYES
  4. DICLOFENAC SODIUM AND MISOPROSTOL [Concomitant]
     Active Substance: DICLOFENAC SODIUM\MISOPROSTOL
     Dosage: UNK UNK, BID
  5. TERBUTALINE SULFATE. [Concomitant]
     Active Substance: TERBUTALINE SULFATE
     Dosage: 0.5 MG, UNK
  6. TRIFLUOPERAZINE [Concomitant]
     Active Substance: TRIFLUOPERAZINE\TRIFLUOPERAZINE HYDROCHLORIDE
     Indication: GASTROINTESTINAL PAIN
     Dosage: 2 MG, QHS
  7. VENLAFAXIN [Concomitant]
     Active Substance: VENLAFAXINE HYDROCHLORIDE
     Dosage: 150 MG, QD
  8. BENTYL [Concomitant]
     Active Substance: DICYCLOMINE HYDROCHLORIDE
     Dosage: 20 MG, TID
  9. PREDNISOLONE. [Concomitant]
     Active Substance: PREDNISOLONE
     Dosage: UNK
     Route: 047
  10. BUTALBITAL [Concomitant]
     Active Substance: BUTALBITAL
     Dosage: 50 MG, UNK
  11. TRAMADOL HYDROCHLORIDE. [Concomitant]
     Active Substance: TRAMADOL HYDROCHLORIDE
     Dosage: 100 MG, TID
  12. METHOTREXATE [Suspect]
     Active Substance: METHOTREXATE
     Indication: PRODUCT USED FOR UNKNOWN INDICATION
     Dosage: 0.8 MG, QWK
     Route: 065
  13. DIOVAN [Concomitant]
     Active Substance: VALSARTAN
     Dosage: 160 MG, 1 TABLET
  14. RISEDRONATE [Concomitant]
     Active Substance: RISEDRONATE SODIUM
     Dosage: UNK UNK, QWK
  15. BRICANYL [Concomitant]
     Active Substance: TERBUTALINE SULFATE
     Dosage: 0.5 MG, AS NECESSARY
  16. ENBREL [Suspect]
     Active Substance: ETANERCEPT
     Indication: RHEUMATOID ARTHRITIS
     Dosage: 50 MG/ML, QWK
     Route: 065
     Dates: start: 20130207
  17. LOSEC [Concomitant]
     Active Substance: OMEPRAZOLE
     Dosage: 20 MG, BID
  18. CIPROFLOXACIN. [Concomitant]
     Active Substance: CIPROFLOXACIN
  19. PHENACETIN [Concomitant]
     Active Substance: PHENACETIN
     Dosage: 50 MG, UNK
  20. TRAMADOL HYDROCHLORIDE. [Concomitant]
     Active Substance: TRAMADOL HYDROCHLORIDE
     Dosage: 100 MG, TID
  21. ACETYLSALICYLIC ACID [Concomitant]
     Active Substance: ASPIRIN
     Dosage: 50 MG, UNK
  22. TRAMCET [Concomitant]
     Active Substance: ACETAMINOPHEN\TRAMADOL
     Dosage: FOUR TABLETS DAILY
  23. CAFFEINE. [Concomitant]
     Active Substance: CAFFEINE
     Dosage: 50 MG, UNK
  24. NIFEDIPINE. [Concomitant]
     Active Substance: NIFEDIPINE
     Dosage: 30 MG, QD
  25. OMEPRAZOLE. [Concomitant]
     Active Substance: OMEPRAZOLE
     Dosage: 20 MG, BID
  26. SULFASALAZINE. [Suspect]
     Active Substance: SULFASALAZINE
     Indication: PAIN
     Dosage: UNK
     Route: 065
  27. TENORMIN [Concomitant]
     Active Substance: ATENOLOL
     Dosage: UNK UNK, BID
  28. NASONEX [Concomitant]
     Active Substance: MOMETASONE FUROATE
     Dosage: UNK
  29. TIMOLOL MALEATE. [Concomitant]
     Active Substance: TIMOLOL MALEATE
     Dosage: 5 MG, BOTH EYES EVERYDAY
     Route: 047
  30. DICYCLOMINE                        /00068602/ [Concomitant]
     Dosage: 20 MG, TID
  31. FIORINAL [Concomitant]
     Active Substance: ASPIRIN\BUTALBITAL\CAFFEINE
     Dosage: 50 MG, AS NECESSARY
  32. ARTHROTEC [Concomitant]
     Active Substance: DICLOFENAC SODIUM\MISOPROSTOL
     Dosage: 75-200MG BID
  33. FOLIC ACID. [Concomitant]
     Active Substance: FOLIC ACID
     Dosage: 5 MG, UNK
  34. CYCLOBENZAPRINE [Concomitant]
     Active Substance: CYCLOBENZAPRINE
     Dosage: 10 MG, QHS
  35. XANAX [Concomitant]
     Active Substance: ALPRAZOLAM
     Dosage: 0.25 MG, UNK

REACTIONS (22)
  - Gastric haemorrhage [Unknown]
  - Somnolence [Unknown]
  - Gastrooesophageal reflux disease [Unknown]
  - Blood iron decreased [Unknown]
  - Anaemia [Unknown]
  - Activities of daily living impaired [Unknown]
  - Headache [Unknown]
  - Hypertension [Unknown]
  - Fatigue [Unknown]
  - Oesophageal haemorrhage [Unknown]
  - Skin odour abnormal [Unknown]
  - Tremor [Unknown]
  - Tension headache [Unknown]
  - Sinus headache [Unknown]
  - Cataract [Unknown]
  - Bronchitis chronic [Unknown]
  - Migraine [Unknown]
  - Pain [Unknown]
  - Rash [Unknown]
  - Hiatus hernia [Unknown]
  - Fibromyalgia [Unknown]
  - Thyroid neoplasm [Unknown]

NARRATIVE: CASE EVENT DATE: 201302
